FAERS Safety Report 11656678 (Version 6)
Quarter: 2016Q1

REPORT INFORMATION
  Report Type: Spontaneous
  Country: US (occurrence: US)
  Receive Date: 20151023
  Receipt Date: 20160203
  Transmission Date: 20160525
  Serious: Yes (Other)
  Sender: FDA-Public Use
  Company Number: US-GLAXOSMITHKLINE-US2015148950

PATIENT
  Age: 75 Year
  Sex: Female

DRUGS (11)
  1. PNEUMONIA SHOT [Suspect]
     Active Substance: PNEUMOCOCCAL VACCINE POLYVALENT
     Dosage: UNK
     Dates: start: 20150512
  2. CETIRIZINE [Concomitant]
     Active Substance: CETIRIZINE HYDROCHLORIDE
     Dosage: UNK
  3. WARFARIN [Concomitant]
     Active Substance: WARFARIN
  4. BREO ELLIPTA [Suspect]
     Active Substance: FLUTICASONE FUROATE\VILANTEROL TRIFENATATE
     Dosage: UNK
  5. VITAMIN D3 [Concomitant]
     Active Substance: CHOLECALCIFEROL
  6. ADVAIR DISKUS [Suspect]
     Active Substance: FLUTICASONE PROPIONATE\SALMETEROL XINAFOATE
     Indication: PNEUMONITIS
     Dosage: 1 PUFF(S), BID
     Route: 055
     Dates: start: 201506, end: 20151014
  7. ATORVASTATIN [Concomitant]
     Active Substance: ATORVASTATIN
  8. BREO ELLIPTA [Suspect]
     Active Substance: FLUTICASONE FUROATE\VILANTEROL TRIFENATATE
     Indication: ASTHMA
     Dosage: UNK
     Route: 055
     Dates: start: 20151015, end: 20151027
  9. VERAPAMIL HYDROCHLORIDE. [Concomitant]
     Active Substance: VERAPAMIL HYDROCHLORIDE
  10. ALBUTEROL INHALER [Concomitant]
     Active Substance: ALBUTEROL
  11. ANASTROZOLE. [Concomitant]
     Active Substance: ANASTROZOLE

REACTIONS (9)
  - Nasal congestion [Unknown]
  - Rhinorrhoea [Unknown]
  - Breath sounds abnormal [Recovered/Resolved]
  - Condition aggravated [Unknown]
  - Wheezing [Recovered/Resolved]
  - Drug ineffective [Recovered/Resolved]
  - Pneumonia [Recovered/Resolved]
  - Dyspnoea [Recovered/Resolved]
  - Ill-defined disorder [Unknown]

NARRATIVE: CASE EVENT DATE: 20150609
